FAERS Safety Report 11483860 (Version 1)
Quarter: 2015Q3

REPORT INFORMATION
  Report Type: Spontaneous
  Country: US (occurrence: None)
  Receive Date: 20150904
  Receipt Date: 20150904
  Transmission Date: 20151125
  Serious: Yes (Other)
  Sender: FDA-Public Use
  Company Number: 1000069618

PATIENT
  Age: 29 Year
  Sex: Female
  Weight: 49.8 kg

DRUGS (4)
  1. GILENYA [Suspect]
     Active Substance: FINGOLIMOD HYDROCHLORIDE
     Indication: MULTIPLE SCLEROSIS
     Route: 048
     Dates: end: 20140707
  2. AMPYRA (FAMPRIDINE) (FAMPRIDINE) [Concomitant]
  3. LEXAPRO [Suspect]
     Active Substance: ESCITALOPRAM OXALATE
     Indication: DEPRESSION
     Route: 048
     Dates: start: 20131217, end: 20140708
  4. VITAMIN D (VITAMIN D) (VITAMIN D) [Concomitant]

REACTIONS (1)
  - Thrombocytopenia [None]
